FAERS Safety Report 20096126 (Version 1)
Quarter: 2021Q4

REPORT INFORMATION
  Report Type: Spontaneous
  Country: US (occurrence: US)
  Receive Date: 20211122
  Receipt Date: 20211122
  Transmission Date: 20220303
  Serious: Yes (Hospitalization)
  Sender: FDA-Public Use
  Company Number: US-AMGEN-USASP2021180649

PATIENT
  Age: 70 Year
  Sex: Female
  Weight: 43 kg

DRUGS (1)
  1. MVASI [Suspect]
     Active Substance: BEVACIZUMAB-AWWB
     Indication: Lung adenocarcinoma
     Dosage: 600 MILLIGRAM
     Route: 065

REACTIONS (4)
  - Unevaluable event [Unknown]
  - Illness [Unknown]
  - Platelet count decreased [Unknown]
  - Haemoglobin decreased [Unknown]
